FAERS Safety Report 10146090 (Version 1)
Quarter: 2014Q2

REPORT INFORMATION
  Report Type: Spontaneous
  Country: GB (occurrence: GB)
  Receive Date: 20140501
  Receipt Date: 20140501
  Transmission Date: 20141212
  Serious: Yes (Disabling)
  Sender: FDA-Public Use
  Company Number: GB-MYLANLABS-2014S1009417

PATIENT
  Age: 69 Year
  Sex: Female
  Weight: 74.8 kg

DRUGS (5)
  1. LEVOFLOXACIN [Suspect]
     Dates: start: 20140220
  2. ASMABEC [Concomitant]
     Dates: start: 20131212, end: 20140111
  3. ERYTHROMYCIN [Concomitant]
     Dates: start: 20140102, end: 20140109
  4. PAROXETINE [Concomitant]
     Dates: start: 20131212, end: 20140402
  5. TERBUTALINE [Concomitant]
     Dates: start: 20131212, end: 20140402

REACTIONS (3)
  - Arthralgia [Recovering/Resolving]
  - Arthropathy [Recovering/Resolving]
  - Influenza [Unknown]
